FAERS Safety Report 11090885 (Version 1)
Quarter: 2015Q2

REPORT INFORMATION
  Report Type: Spontaneous
  Country: US (occurrence: US)
  Receive Date: 20150505
  Receipt Date: 20150505
  Transmission Date: 20150821
  Serious: Yes (Other)
  Sender: FDA-Public Use
  Company Number: US-PFIZER INC-2015139151

PATIENT
  Age: 48 Year
  Sex: Male

DRUGS (3)
  1. LIPITOR [Suspect]
     Active Substance: ATORVASTATIN CALCIUM
     Dosage: UNK
     Dates: start: 2011
  2. NIASPAN [Suspect]
     Active Substance: NIACIN
     Dosage: UNK
     Dates: start: 2011
  3. TRICOR [Suspect]
     Active Substance: FENOFIBRATE
     Dosage: UNK
     Dates: start: 2011

REACTIONS (1)
  - Liver function test abnormal [Unknown]
